FAERS Safety Report 14561812 (Version 1)
Quarter: 2018Q1

REPORT INFORMATION
  Report Type: Spontaneous
  Country: US (occurrence: US)
  Receive Date: 20180222
  Receipt Date: 20180222
  Transmission Date: 20180509
  Serious: Yes (Hospitalization)
  Sender: FDA-Public Use
  Company Number: US-SA-2018SA037786

PATIENT
  Age: 81 Year
  Sex: Male

DRUGS (1)
  1. SEVELAMER CARBONATE. [Suspect]
     Active Substance: SEVELAMER CARBONATE
     Indication: END STAGE RENAL DISEASE
     Route: 065

REACTIONS (9)
  - Duodenal ulcer [Recovered/Resolved]
  - Diarrhoea [Unknown]
  - Nausea [Unknown]
  - Haematochezia [Unknown]
  - Duodenal ulcer haemorrhage [Unknown]
  - Vomiting [Unknown]
  - Pyrexia [Unknown]
  - Gastrointestinal inflammation [Unknown]
  - Abdominal pain [Unknown]
